FAERS Safety Report 25008524 (Version 1)
Quarter: 2025Q1

REPORT INFORMATION
  Report Type: Spontaneous
  Country: IN (occurrence: IN)
  Receive Date: 20250225
  Receipt Date: 20250225
  Transmission Date: 20250409
  Serious: Yes (Death)
  Sender: MYLAN
  Company Number: IN-MYLANLABS-2025M1015646

PATIENT
  Age: 59 Year

DRUGS (2)
  1. ETOPOSIDE [Suspect]
     Active Substance: ETOPOSIDE
     Indication: Primitive neuroectodermal tumour
     Dosage: UNK, 3XW (THRICE A WEEK FOR SIX CYCLES)
  2. IFOSFAMIDE [Suspect]
     Active Substance: IFOSFAMIDE
     Indication: Primitive neuroectodermal tumour
     Dosage: UNK, 3XW (THRICE A WEEK FOR SIX CYCLES)

REACTIONS (1)
  - Drug ineffective [Fatal]
